FAERS Safety Report 17547538 (Version 2)
Quarter: 2020Q1

REPORT INFORMATION
  Report Type: Report from Study
  Country: US (occurrence: US)
  Receive Date: 20200316
  Receipt Date: 20200327
  Transmission Date: 20200409
  Serious: Yes (Hospitalization)
  Sender: FDA-Public Use
  Company Number: US-GILEAD-2020-0454065

PATIENT
  Age: 56 Year
  Sex: Female

DRUGS (1)
  1. AMBRISENTAN [Suspect]
     Active Substance: AMBRISENTAN
     Indication: PRODUCT USED FOR UNKNOWN INDICATION
     Dosage: 5 MG
     Route: 065
     Dates: start: 20170628

REACTIONS (5)
  - Pyrexia [Not Recovered/Not Resolved]
  - Product use issue [Not Recovered/Not Resolved]
  - Face injury [Unknown]
  - Feeling abnormal [Not Recovered/Not Resolved]
  - Contusion [Not Recovered/Not Resolved]
